FAERS Safety Report 8831774 (Version 2)
Quarter: 2012Q4

REPORT INFORMATION
  Report Type: 
  Country: DE (occurrence: DE)
  Receive Date: 20121009
  Receipt Date: 20121219
  Transmission Date: 20130627
  Serious: Yes (Hospitalization)
  Sender: FDA-Public Use
  Company Number: PHHY2011DE76558

PATIENT
  Age: 22 Year
  Sex: Male

DRUGS (4)
  1. RITALIN LA [Suspect]
     Indication: DEPRESSION
     Dosage: 20 mg, Daily
     Route: 048
  2. RITALIN LA [Suspect]
     Indication: PSYCHOTIC DISORDER
     Dosage: 50 mg, Daily
     Route: 048
     Dates: start: 201106
  3. AARANE N [Concomitant]
     Indication: ASTHMA
  4. CORTISONE [Concomitant]
     Indication: ASTHMA

REACTIONS (7)
  - Hypertension [Recovering/Resolving]
  - Headache [Not Recovered/Not Resolved]
  - Tachycardia [Recovering/Resolving]
  - Abdominal discomfort [Not Recovered/Not Resolved]
  - Sensation of pressure [Not Recovered/Not Resolved]
  - Movement disorder [Unknown]
  - Hypersensitivity [Unknown]
